FAERS Safety Report 8789039 (Version 2)
Quarter: 2013Q1

REPORT INFORMATION
  Report Type: Report from Study
  Country: JP (occurrence: JP)
  Receive Date: 20120917
  Receipt Date: 20130220
  Transmission Date: 20140127
  Serious: No
  Sender: FDA-Public Use
  Company Number: JP-009507513-1209JPN004470

PATIENT
  Age: 69 Year
  Sex: Male
  Weight: 63 kg

DRUGS (13)
  1. PEGINTRON [Suspect]
     Indication: CHRONIC HEPATITIS C
     Dosage: 1.5 MICROGRAM PER KILOGRAM, QW
     Route: 058
     Dates: start: 20120515, end: 20120717
  2. REBETOL [Suspect]
     Indication: CHRONIC HEPATITIS C
     Dosage: 800 MG, QD
     Route: 048
     Dates: start: 20120515, end: 20120529
  3. REBETOL [Suspect]
     Dosage: 400 MG, QD
     Route: 048
     Dates: start: 20120529, end: 20120619
  4. REBETOL [Suspect]
     Dosage: 200 MG, QD
     Route: 048
     Dates: start: 20120619, end: 20120717
  5. TELAVIC [Suspect]
     Indication: CHRONIC HEPATITIS C
     Dosage: 2250 MG, QD
     Route: 048
     Dates: start: 20120515, end: 20120717
  6. URSO [Concomitant]
     Indication: CHRONIC HEPATITIS C
     Dosage: 600 MG, QD, FORMULATION: POR
     Route: 048
  7. AVAPRO [Concomitant]
     Indication: HYPERTENSION
     Dosage: 50 MG, QD, FORMULATION: POR
     Route: 048
  8. TRYTHMEN [Concomitant]
     Indication: HYPERTENSION
     Dosage: 2 MG, QD. FORMULATION: POR
     Route: 048
  9. MENATETRENONE [Concomitant]
     Indication: OSTEOPOROSIS
     Dosage: 45 MG, QD, FORMULATION: POR
     Route: 048
  10. MAGMITT [Concomitant]
     Indication: CONSTIPATION
     Dosage: 990 MG, QD, FORMULATION: POR
     Route: 048
  11. MECOBALAMIN [Concomitant]
     Indication: NEUROPATHY PERIPHERAL
     Dosage: 1500 MG QD, FORMULATION: POR
     Route: 048
  12. LYRICA [Concomitant]
     Indication: NEUROPATHY PERIPHERAL
     Dosage: 50 MG, QD, FORMULATION: POR
     Route: 048
  13. LOXOPROFEN SODIUM [Concomitant]
     Indication: NEUROPATHY PERIPHERAL
     Dosage: DOSE IS UNCERTAIN DURING A DAY, FORMULATION: EXT, Q.S. PER DAY
     Route: 051

REACTIONS (1)
  - Hyperuricaemia [Recovered/Resolved]
